FAERS Safety Report 22246882 (Version 4)
Quarter: 2023Q4

REPORT INFORMATION
  Report Type: Report from Study
  Country: US (occurrence: US)
  Receive Date: 20230424
  Receipt Date: 20231026
  Transmission Date: 20240110
  Serious: Yes (Death, Hospitalization, Other)
  Sender: FDA-Public Use
  Company Number: US-JAZZ PHARMACEUTICALS-2023-US-009113

PATIENT
  Age: 60 Year
  Sex: Female
  Weight: 71 kg

DRUGS (26)
  1. LURBINECTEDIN [Suspect]
     Active Substance: LURBINECTEDIN
     Indication: Hypoparathyroidism
     Dosage: 5.7 MILLIGRAM, Q21D
     Route: 042
     Dates: start: 20230410
  2. ATENOLOL [Concomitant]
     Active Substance: ATENOLOL
     Dosage: 25 MILLIGRAM, BID
     Route: 048
     Dates: start: 20221214
  3. ELIQUIS [Concomitant]
     Active Substance: APIXABAN
     Dosage: 5 MILLIGRAM, BID
     Route: 048
     Dates: start: 202206
  4. PRILOSEC [Concomitant]
     Active Substance: OMEPRAZOLE MAGNESIUM
     Dosage: 40 MILLIGRAM, QD
     Route: 048
     Dates: start: 202211
  5. POTASSIUM CHLORIDE [Concomitant]
     Active Substance: POTASSIUM CHLORIDE
     Dosage: 10 MILLIEQUIVALENT PER LITRE, QD
     Route: 048
     Dates: start: 20220718
  6. ATORVASTATIN [Concomitant]
     Active Substance: ATORVASTATIN
     Dosage: 10 MILLIGRAM, QD
     Route: 048
     Dates: start: 20210921
  7. NYSTATIN [Concomitant]
     Active Substance: NYSTATIN
     Dosage: 100 U/ML, 5 ML SWISH
     Dates: start: 20230410, end: 20230419
  8. DEXAMETHASONE [Concomitant]
     Active Substance: DEXAMETHASONE
     Dosage: 4 MILLIGRAM
     Route: 048
     Dates: start: 20230411, end: 20230412
  9. ONDANSETRON [Concomitant]
     Active Substance: ONDANSETRON
     Dosage: 8 MILLIGRAM, BID
     Route: 048
     Dates: start: 20230411, end: 20230412
  10. COMPAZINE [Concomitant]
     Active Substance: PROCHLORPERAZINE MALEATE
     Dosage: 10 MILLIGRAM, TID,PRM
     Route: 048
     Dates: start: 20230307, end: 20230416
  11. FUROSEMIDE [Concomitant]
     Active Substance: FUROSEMIDE
     Dosage: 20 MILLIGRAM, QD
     Dates: start: 20230221, end: 20230416
  12. OXYCODONE [Concomitant]
     Active Substance: OXYCODONE
     Dosage: 5 MILLIGRAM, PRN
     Dates: start: 202301, end: 20230416
  13. MELATONIN [Concomitant]
     Active Substance: MELATONIN
     Dosage: 300 MICROGRAM, QD, PRM
     Route: 048
     Dates: start: 202301, end: 20230416
  14. VITAMIN D3 [Concomitant]
     Active Substance: CHOLECALCIFEROL
     Dosage: 10K UNITS Q WEEK
     Dates: start: 2022, end: 20230416
  15. VITAMIN D2 [Concomitant]
     Active Substance: ERGOCALCIFEROL
     Dosage: 1200 MICROGRAM, Q WEEK
     Route: 048
     Dates: start: 2022, end: 20230416
  16. XANAX [Concomitant]
     Active Substance: ALPRAZOLAM
     Dosage: 0.25 MILLIGRAM, PRN
     Route: 048
     Dates: start: 20170926, end: 20230416
  17. EFFEXOR [Concomitant]
     Active Substance: VENLAFAXINE HYDROCHLORIDE
     Dosage: 75 MILLIGRAM, QD
     Route: 048
     Dates: start: 20160131, end: 20230416
  18. VITAMINS NOS [Concomitant]
     Active Substance: VITAMINS
     Dosage: UNK UNK, QD
     Route: 048
     Dates: start: 20091222, end: 20230416
  19. VISCUM ALBUM FRUITING TOP [Concomitant]
     Active Substance: VISCUM ALBUM FRUITING TOP
     Dosage: UNK
     Route: 042
     Dates: end: 20230330
  20. BROMELAINS [Concomitant]
     Active Substance: BROMELAINS
     Dosage: UNK UNK, QD
     Route: 048
     Dates: start: 20221214, end: 20230330
  21. VITAMIN C [Concomitant]
     Active Substance: ASCORBIC ACID
     Dosage: 100 MILLIGRAM, QD
     Route: 048
     Dates: start: 20210316, end: 20230328
  22. TURKEY TAIL [Concomitant]
     Dosage: UNK UNK, QD
     Route: 048
     Dates: start: 20221214, end: 20230328
  23. REISHI [GANODERMA LUCIDUM] [Concomitant]
     Dosage: UNK, QD
     Route: 048
     Dates: start: 20221214, end: 20230328
  24. TRANSFER FACTOR [Concomitant]
     Dosage: UNK, QD
     Route: 048
     Dates: start: 20221214, end: 20230328
  25. DIETARY SUPPLEMENT [Concomitant]
     Active Substance: DIETARY SUPPLEMENT
     Dosage: UNK
     Dates: start: 20221214, end: 20230328
  26. PEGFILGRASTIM CBQV [Concomitant]
     Dosage: 6 MILLIGRAM, SQ X1
     Dates: start: 20230411, end: 20230411

REACTIONS (3)
  - Acute kidney injury [Fatal]
  - Acute respiratory failure [Fatal]
  - Tumour lysis syndrome [Recovered/Resolved]

NARRATIVE: CASE EVENT DATE: 20230416
